FAERS Safety Report 15933483 (Version 3)
Quarter: 2019Q1

REPORT INFORMATION
  Report Type: Spontaneous
  Country: DE (occurrence: DE)
  Receive Date: 20190207
  Receipt Date: 20190208
  Transmission Date: 20190417
  Serious: Yes (Hospitalization, Other)
  Sender: FDA-Public Use
  Company Number: DE-ASCEND THERAPEUTICS-2062283

PATIENT
  Age: 61 Year
  Sex: Female

DRUGS (3)
  1. PROGESTERONE. [Suspect]
     Active Substance: PROGESTERONE
     Dates: start: 20090506, end: 20180706
  2. UTROGESTAN [Suspect]
     Active Substance: PROGESTERONE
     Dates: start: 20090506, end: 20180706
  3. ESTROGEL [Suspect]
     Active Substance: ESTRADIOL
     Indication: HORMONE REPLACEMENT THERAPY
     Route: 062
     Dates: start: 20090506, end: 20180706

REACTIONS (2)
  - Breast cancer stage I [Recovered/Resolved with Sequelae]
  - Breast cancer female [Recovered/Resolved]

NARRATIVE: CASE EVENT DATE: 20180706
